FAERS Safety Report 11509326 (Version 1)
Quarter: 2015Q3

REPORT INFORMATION
  Report Type: Spontaneous
  Country: PL (occurrence: PL)
  Receive Date: 20150915
  Receipt Date: 20150915
  Transmission Date: 20151125
  Serious: Yes (Other)
  Sender: FDA-Public Use
  Company Number: PHHY2015PL105514

PATIENT
  Age: 63 Year
  Sex: Male

DRUGS (1)
  1. LEUPROSTIN [Suspect]
     Active Substance: LEUPROLIDE ACETATE
     Indication: HORMONE-DEPENDENT PROSTATE CANCER
     Dosage: 5 MG, UNK
     Route: 058
     Dates: start: 20150517, end: 20150817

REACTIONS (1)
  - Lymphoedema [Unknown]
